FAERS Safety Report 5298843-8 (Version None)
Quarter: 2007Q2

REPORT INFORMATION
  Report Type: 
  Country: None (occurrence: None)
  Receive Date: 20070411
  Receipt Date: 20070411
  Transmission Date: 20071010
  Serious: Yes (Other)
  Sender: FDA-Public Use
  Company Number: None

PATIENT
  Age: 76 Year
  Sex: Male
  Weight: 98.9 kg

DRUGS (1)
  1. TRUSOPT [Suspect]
     Indication: GLAUCOMA
     Dosage: 1BID OU, 1BID OU, OPHTHALM
     Route: 047
     Dates: start: 20070320, end: 20070323

REACTIONS (4)
  - CONJUNCTIVAL OEDEMA [None]
  - CONJUNCTIVITIS [None]
  - OCULAR HYPERAEMIA [None]
  - RASH [None]
